FAERS Safety Report 8805361 (Version 2)
Quarter: 2012Q4

REPORT INFORMATION
  Report Type: 
  Country: GB (occurrence: GB)
  Receive Date: 20120924
  Receipt Date: 20121220
  Transmission Date: 20130627
  Serious: Yes (Hospitalization)
  Sender: FDA-Public Use
  Company Number: PHHY2012GB073602

PATIENT
  Age: 85 Year
  Sex: Male
  Weight: 59 kg

DRUGS (3)
  1. DONEPEZIL [Suspect]
     Indication: DEMENTIA
     Dosage: 10 mg, daily
     Route: 048
     Dates: start: 201110, end: 20120817
  2. SIMVASTATIN [Concomitant]
     Indication: HYPERCHOLESTEROLAEMIA
     Dosage: 40 mg, QD
     Route: 048
  3. OXYBUTYNIN [Concomitant]
     Indication: INCONTINENCE
     Dosage: 5 mg, QD
     Route: 048

REACTIONS (2)
  - Bradycardia [Recovering/Resolving]
  - Fall [Recovering/Resolving]
